FAERS Safety Report 6637198-0 (Version None)
Quarter: 2010Q1

REPORT INFORMATION
  Report Type: 
  Country: None (occurrence: None)
  Receive Date: 20100310
  Receipt Date: 20100225
  Transmission Date: 20100710
  Serious: Yes (Disabling)
  Sender: FDA-Public Use
  Company Number: 2010-0255

PATIENT
  Age: 55 Year
  Sex: Male
  Weight: 67 kg

DRUGS (14)
  1. SOMATULINE DEPOT [Suspect]
     Indication: ACROMEGALY
     Dosage: 90 MG, 1 IN 1 M, INTRAMUSCULAR
     Route: 030
     Dates: start: 19940315
  2. SUSTANON (TESTOSTERONE) [Concomitant]
  3. CANDESARTAN CILEXETIL [Concomitant]
  4. DICLOFENAC SODIUM [Concomitant]
  5. DIHYDROCODEINE COMPOUND [Concomitant]
  6. FUROSEMIDE [Concomitant]
  7. GLUCOSAMINE SULPHATE WITH CHONDROITIN SULPHATE (JOINT FOOD) [Concomitant]
  8. MAXEPA (MAXEPA) [Concomitant]
  9. METFORMIN HCL [Concomitant]
  10. ACETAMINOPHEN [Concomitant]
  11. SALMETEROL (SALMETEROL) [Concomitant]
  12. SIMVASTATIN [Concomitant]
  13. VENTOLIN EVOHALER (SALBUTAMOL) [Concomitant]
  14. CLENIL MODULITE (BECLOMETASONE DIPROPIONATE) [Concomitant]

REACTIONS (2)
  - PAIN IN EXTREMITY [None]
  - PROCEDURAL COMPLICATION [None]
